FAERS Safety Report 7489601-4 (Version None)
Quarter: 2011Q2

REPORT INFORMATION
  Report Type: 
  Country: None (occurrence: None)
  Receive Date: 20110519
  Receipt Date: 20110509
  Transmission Date: 20111010
  Serious: Yes (Hospitalization)
  Sender: FDA-Public Use
  Company Number: DE-BIOGENIDEC-2011BI017795

PATIENT
  Age: 37 Year
  Sex: Female
  Weight: 68 kg

DRUGS (2)
  1. AVONEX [Suspect]
     Indication: MULTIPLE SCLEROSIS
     Route: 030
     Dates: start: 20100220
  2. PAROXETINE HCL [Concomitant]
     Indication: DEPRESSION
     Dates: start: 20010101

REACTIONS (2)
  - VENTRICULAR FIBRILLATION [None]
  - NASOPHARYNGITIS [None]
